FAERS Safety Report 21371587 (Version 1)
Quarter: 2022Q3

REPORT INFORMATION
  Report Type: Report from Study
  Country: AR (occurrence: AR)
  Receive Date: 20220923
  Receipt Date: 20220923
  Transmission Date: 20221027
  Serious: Yes (Hospitalization, Other)
  Sender: FDA-Public Use
  Company Number: AR-TAKEDA-2022TUS066148

PATIENT
  Age: 16 Year
  Sex: Male

DRUGS (12)
  1. IDURSULFASE [Suspect]
     Active Substance: IDURSULFASE
     Indication: Mucopolysaccharidosis II
     Dosage: 0.5 MILLIGRAM/KILOGRAM, 1/WEEK
     Route: 065
     Dates: start: 20141016
  2. ALBUTEROL [Concomitant]
     Active Substance: ALBUTEROL
     Indication: Dyspnoea
     Dosage: UNK
     Route: 055
     Dates: start: 20201221, end: 20201221
  3. IPRATROPIUM [Concomitant]
     Active Substance: IPRATROPIUM
     Indication: Dyspnoea
     Dosage: UNK
     Route: 065
  4. DEXAMETHASONE [Concomitant]
     Active Substance: DEXAMETHASONE
     Dosage: UNK
     Route: 042
  5. BETAMETHASONE [Concomitant]
     Active Substance: BETAMETHASONE
     Indication: Dyspnoea
     Dosage: UNK
     Route: 048
  6. CLARITHROMYCIN [Concomitant]
     Active Substance: CLARITHROMYCIN
     Indication: Dyspnoea
     Dosage: UNK
     Route: 048
  7. ENALAPRIL [Concomitant]
     Active Substance: ENALAPRIL
     Dosage: UNK
     Route: 048
     Dates: start: 20150416
  8. HYDROCORTISONE [Concomitant]
     Active Substance: HYDROCORTISONE
     Indication: Bronchospasm
     Dosage: UNK
     Route: 050
     Dates: start: 20201221, end: 20201221
  9. EPINEPHRINE [Concomitant]
     Active Substance: EPINEPHRINE
     Indication: Bronchospasm
     Dosage: UNK
     Route: 050
     Dates: start: 20201221
  10. VALPROIC ACID [Concomitant]
     Active Substance: VALPROIC ACID
     Indication: Seizure
     Dosage: UNK
     Route: 048
     Dates: start: 202201
  11. AMOXILINA/ACIDO CLAVULANICO MAYNE [Concomitant]
     Indication: Seizure
     Dosage: UNK
     Route: 048
     Dates: start: 20220808, end: 20220810
  12. AMOXILINA/ACIDO CLAVULANICO MAYNE [Concomitant]
     Indication: Dyspnoea

REACTIONS (3)
  - Seizure [Recovered/Resolved]
  - Dyspnoea [Recovered/Resolved]
  - Hypertonia [Recovered/Resolved]

NARRATIVE: CASE EVENT DATE: 20220801
